FAERS Safety Report 9008908 (Version 1)
Quarter: 2013Q1

REPORT INFORMATION
  Report Type: Spontaneous
  Country: US (occurrence: US)
  Receive Date: 20130111
  Receipt Date: 20130111
  Transmission Date: 20140127
  Serious: Yes (Other)
  Sender: FDA-Public Use
  Company Number: US-009507513-1301USA001753

PATIENT
  Age: 7 Year
  Sex: Male

DRUGS (6)
  1. MONTELUKAST SODIUM [Suspect]
     Indication: ASTHMA
     Dosage: 5 MG, UNK
  2. SALMETEROL [Suspect]
     Dosage: 100 MCG (TWICE DAILY)
  3. FLUTICASONE PROPIONATE [Suspect]
     Dosage: 1500 MCG
  4. ALBUTEROL [Suspect]
     Dosage: 20 MG, (FOUR TIMES DAILY); IH
  5. IPRATROPIUM BROMIDE [Suspect]
     Dosage: 1000 MCG (FOUR TIMES DAILY); IH
     Route: 045
  6. BUDESONIDE [Suspect]
     Dosage: 1000 MCG
     Route: 045

REACTIONS (11)
  - Vomiting [Unknown]
  - Somnolence [Unknown]
  - Rhinorrhoea [Unknown]
  - Pyrexia [Unknown]
  - Hyponatraemia [Unknown]
  - Hypoglycaemia [Unknown]
  - Condition aggravated [Unknown]
  - Blood cortisol decreased [Unknown]
  - Asthma [Unknown]
  - Adrenocortical insufficiency acute [Unknown]
  - Abdominal pain [Unknown]
